FAERS Safety Report 5362559-X (Version None)
Quarter: 2007Q2

REPORT INFORMATION
  Report Type: 
  Country: None (occurrence: None)
  Receive Date: 20070619
  Receipt Date: 20070607
  Transmission Date: 20071010
  Serious: Yes (Other)
  Sender: FDA-Public Use
  Company Number: US-PFIZER INC-2007038508

PATIENT
  Sex: Male

DRUGS (2)
  1. LYRICA [Suspect]
     Indication: COMPLEX REGIONAL PAIN SYNDROME
     Route: 048
  2. ALL OTHER THERAPEUTIC PRODUCTS [Concomitant]

REACTIONS (1)
  - BLISTER [None]
